FAERS Safety Report 18056947 (Version 2)
Quarter: 2020Q3

REPORT INFORMATION
  Report Type: Spontaneous
  Country: US (occurrence: US)
  Receive Date: 20200723
  Receipt Date: 20200904
  Transmission Date: 20201103
  Serious: No
  Sender: FDA-Public Use
  Company Number: US-AMGEN-USASP2020116751

PATIENT
  Sex: Female

DRUGS (1)
  1. REPATHA [Suspect]
     Active Substance: EVOLOCUMAB
     Indication: PULMONARY HYPERTENSION
     Dosage: 140 MILLIGRAM, Q2WK
     Route: 058
     Dates: start: 201801

REACTIONS (1)
  - Off label use [Unknown]
